FAERS Safety Report 5671147-7 (Version None)
Quarter: 2008Q1

REPORT INFORMATION
  Report Type: 
  Country: None (occurrence: None)
  Receive Date: 20080318
  Receipt Date: 20080304
  Transmission Date: 20080703
  Serious: Yes (Other)
  Sender: FDA-Public Use
  Company Number: US-ELI_LILLY_AND_COMPANY-US200803000670

PATIENT
  Sex: Female

DRUGS (2)
  1. FORTEO [Suspect]
     Indication: OSTEOPOROSIS
     Route: 058
     Dates: start: 20070201
  2. EVISTA [Suspect]
     Indication: BONE DISORDER
     Dosage: UNK, UNK
     Dates: start: 20070201

REACTIONS (2)
  - MASS [None]
  - NEOPLASM [None]
